FAERS Safety Report 21502667 (Version 1)
Quarter: 2022Q4

REPORT INFORMATION
  Report Type: Spontaneous
  Country: US (occurrence: US)
  Receive Date: 20221025
  Receipt Date: 20221025
  Transmission Date: 20230112
  Serious: No
  Sender: FDA-Public Use
  Company Number: US-JNJFOC-20221030808

PATIENT
  Age: 77 Year
  Sex: Female
  Weight: 57.1 kg

DRUGS (2)
  1. OPSUMIT [Suspect]
     Active Substance: MACITENTAN
     Indication: Product used for unknown indication
     Route: 048
     Dates: end: 2022
  2. TREPROSTINIL SODIUM [Suspect]
     Active Substance: TREPROSTINIL SODIUM
     Indication: Pulmonary arterial hypertension
     Dosage: DELIVERED BY TYVASO INHALATION DEVICE (TD-300/A?(3 BREATHS), FOUR TIMES A DAY (QID) VIA INHALATION
     Route: 045
     Dates: start: 20220223

REACTIONS (5)
  - Headache [Unknown]
  - Nausea [Unknown]
  - Appetite disorder [Unknown]
  - Weight decreased [Unknown]
  - Drug intolerance [Unknown]
